FAERS Safety Report 12105438 (Version 2)
Quarter: 2016Q1

REPORT INFORMATION
  Report Type: Spontaneous
  Country: CH (occurrence: CH)
  Receive Date: 20160223
  Receipt Date: 20160303
  Transmission Date: 20160526
  Serious: Yes (Other)
  Sender: FDA-Public Use
  Company Number: CH-BRACCO-000252

PATIENT
  Age: 52 Year
  Sex: Female

DRUGS (8)
  1. GADOPENTETATE DIMEGLUMINE. [Suspect]
     Active Substance: GADOPENTETATE DIMEGLUMINE
     Indication: NUCLEAR MAGNETIC RESONANCE IMAGING ABDOMINAL
     Dates: start: 200208, end: 200208
  2. PROHANCE [Suspect]
     Active Substance: GADOTERIDOL
     Indication: RENAL SCAN
     Dates: start: 200108, end: 200108
  3. GADOBUTROL [Suspect]
     Active Substance: GADOBUTROL
     Indication: NUCLEAR MAGNETIC RESONANCE IMAGING BRAIN
     Dates: start: 200512, end: 200512
  4. GADODIAMIDE [Suspect]
     Active Substance: GADODIAMIDE
     Indication: NUCLEAR MAGNETIC RESONANCE IMAGING
     Dates: start: 200105, end: 200105
  5. PROHANCE [Suspect]
     Active Substance: GADOTERIDOL
     Indication: NUCLEAR MAGNETIC RESONANCE IMAGING
     Dates: start: 200205, end: 200205
  6. PROHANCE [Suspect]
     Active Substance: GADOTERIDOL
     Indication: NUCLEAR MAGNETIC RESONANCE IMAGING ABDOMINAL
     Dates: start: 200504, end: 200504
  7. GADODIAMIDE [Suspect]
     Active Substance: GADODIAMIDE
     Indication: RENAL SCAN
     Dates: start: 199608, end: 199608
  8. GADOPENTETATE DIMEGLUMINE. [Suspect]
     Active Substance: GADOPENTETATE DIMEGLUMINE
     Indication: NUCLEAR MAGNETIC RESONANCE IMAGING ABDOMINAL
     Dates: start: 200112, end: 200112

REACTIONS (3)
  - Altered state of consciousness [Unknown]
  - Confusional state [Unknown]
  - Nuclear magnetic resonance imaging brain abnormal [Unknown]
